FAERS Safety Report 4986458-8 (Version None)
Quarter: 2006Q2

REPORT INFORMATION
  Report Type: 
  Country: None (occurrence: None)
  Receive Date: 20060428
  Receipt Date: 20050701
  Transmission Date: 20061013
  Serious: Yes (Life-Threatening, Hospitalization, Disabling, Other)
  Sender: FDA-Public Use
  Company Number: US-GILEAD-2005-0008473

PATIENT
  Age: 53 Year
  Sex: Male
  Weight: 64 kg

DRUGS (6)
  1. TRUVADA [Suspect]
     Indication: HIV INFECTION
     Route: 048
     Dates: start: 20050620
  2. SUSTIVA [Concomitant]
     Indication: HIV INFECTION
     Route: 048
     Dates: start: 20050620
  3. DAPSONE [Concomitant]
     Indication: PNEUMOCYSTIS JIROVECI PNEUMONIA
     Dates: start: 20050524, end: 20051031
  4. ACYCLOVIR [Concomitant]
     Indication: HERPES SIMPLEX
     Route: 048
     Dates: start: 20050627, end: 20050707
  5. ACYCLOVIR [Concomitant]
     Indication: ORAL HAIRY LEUKOPLAKIA
  6. DIFLUCAN [Concomitant]
     Indication: CANDIDIASIS
     Route: 048
     Dates: start: 20050524, end: 20050707

REACTIONS (13)
  - ANAEMIA [None]
  - ERYTHEMA [None]
  - GENE MUTATION [None]
  - HYPOKALAEMIA [None]
  - ISCHAEMIC NEUROPATHY [None]
  - LUNG INFILTRATION [None]
  - LUNG INJURY [None]
  - MASS [None]
  - PERIPHERAL EMBOLISM [None]
  - PERIPHERAL SENSORY NEUROPATHY [None]
  - POST PROCEDURAL COMPLICATION [None]
  - POSTOPERATIVE FEVER [None]
  - TRANSFUSION-RELATED ACUTE LUNG INJURY [None]
